FAERS Safety Report 9028502 (Version 1)
Quarter: 2013Q1

REPORT INFORMATION
  Report Type: Spontaneous
  Country: US (occurrence: US)
  Receive Date: 20130124
  Receipt Date: 20130124
  Transmission Date: 20140127
  Serious: Yes (Other)
  Sender: FDA-Public Use
  Company Number: US-ASTRAZENECA-2013SE03549

PATIENT
  Age: 48 Year
  Sex: Female
  Weight: 114.3 kg

DRUGS (2)
  1. OMEPRAZOLE [Suspect]
     Indication: GASTROOESOPHAGEAL REFLUX DISEASE
     Route: 048
     Dates: start: 2010
  2. NEXIUM [Suspect]
     Indication: GASTROOESOPHAGEAL REFLUX DISEASE
     Route: 048
     Dates: start: 201212

REACTIONS (7)
  - Nasal septum deviation [Recovered/Resolved]
  - Nasal disorder [Unknown]
  - Pharyngitis bacterial [Unknown]
  - Oral bacterial infection [Unknown]
  - Regurgitation [Unknown]
  - Bacterial infection [Unknown]
  - Drug ineffective [Unknown]
